FAERS Safety Report 5142131-7 (Version None)
Quarter: 2006Q4

REPORT INFORMATION
  Report Type: 
  Country: None (occurrence: None)
  Receive Date: 20061030
  Receipt Date: 20061030
  Transmission Date: 20070319
  Serious: No
  Sender: FDA-Public Use
  Company Number: None

PATIENT

DRUGS (2)
  1. WALGREEN'S ANALGESIC CREAM WITH ALOE [Suspect]
     Dosage: CREAM
  2. ASPERCREME [Suspect]
     Dosage: CREAM

REACTIONS (2)
  - MEDICATION ERROR [None]
  - PHARMACEUTICAL PRODUCT COMPLAINT [None]
